FAERS Safety Report 5063916-1 (Version None)
Quarter: 2006Q3

REPORT INFORMATION
  Report Type: 
  Country: None (occurrence: None)
  Receive Date: 20060703
  Receipt Date: 20050926
  Transmission Date: 20061208
  Serious: No
  Sender: FDA-Public Use
  Company Number: 2005S1009524

PATIENT
  Age: 39 Year
  Sex: Female

DRUGS (7)
  1. CLOZAPINE [Suspect]
     Indication: SCHIZOPHRENIA
     Dosage: SEE IMAGE
     Route: 048
     Dates: start: 20031101
  2. CLOZAPINE [Suspect]
     Indication: SCHIZOPHRENIA
     Dosage: SEE IMAGE
     Route: 048
     Dates: start: 20031101
  3. LEVETIRACETAM [Concomitant]
  4. BENZTROPINE MESYLATE [Concomitant]
  5. PAROXETINE HYDROCHLORIDE [Concomitant]
  6. DOCUSATE [Concomitant]
  7. GEMFIBROZIL [Concomitant]

REACTIONS (1)
  - GRANULOCYTOPENIA [None]
